FAERS Safety Report 17556109 (Version 1)
Quarter: 2020Q1

REPORT INFORMATION
  Report Type: Spontaneous
  Country: US (occurrence: US)
  Receive Date: 20200318
  Receipt Date: 20200318
  Transmission Date: 20200409
  Serious: Yes (Other)
  Sender: FDA-Public Use
  Company Number: None

PATIENT
  Age: 65 Year
  Sex: Female
  Weight: 88.79 kg

DRUGS (22)
  1. FLLUCONAZOLE [Concomitant]
  2. HUMIRA [Concomitant]
     Active Substance: ADALIMUMAB
  3. OXYCODONE/APAP [Concomitant]
     Active Substance: ACETAMINOPHEN\OXYCODONE HYDROCHLORIDE
  4. STELARA [Concomitant]
     Active Substance: USTEKINUMAB
  5. ALLOPURINOL. [Concomitant]
     Active Substance: ALLOPURINOL
  6. AMOXICILLIN. [Concomitant]
     Active Substance: AMOXICILLIN
  7. BENZONATATE. [Concomitant]
     Active Substance: BENZONATATE
  8. FLUOCINONIDE. [Concomitant]
     Active Substance: FLUOCINONIDE
  9. FLUBLOK QUALDRIVALENT [Concomitant]
  10. LIPITOR [Concomitant]
     Active Substance: ATORVASTATIN CALCIUM
  11. CEFDINIR. [Concomitant]
     Active Substance: CEFDINIR
  12. CARISOPRODOL. [Concomitant]
     Active Substance: CARISOPRODOL
  13. LEVOTHYROXINE. [Concomitant]
     Active Substance: LEVOTHYROXINE
  14. METFORMIN [Concomitant]
     Active Substance: METFORMIN HYDROCHLORIDE
  15. NYSTATIN. [Concomitant]
     Active Substance: NYSTATIN
  16. ZOLPIDEM [Concomitant]
     Active Substance: ZOLPIDEM TARTRATE
  17. ELIDEL [Concomitant]
     Active Substance: PIMECROLIMUS
  18. ESCITALOPRAM [Concomitant]
     Active Substance: ESCITALOPRAM OXALATE
  19. ESZOPICLONE. [Concomitant]
     Active Substance: ESZOPICLONE
  20. TASIGNA [Suspect]
     Active Substance: NILOTINIB
     Indication: CHRONIC MYELOID LEUKAEMIA
     Route: 048
     Dates: start: 20200214
  21. ATIVAN [Concomitant]
     Active Substance: LORAZEPAM
  22. PNEUMOVAX 23 [Concomitant]
     Active Substance: PNEUMOCOCCAL VACCINE, POLYVALENT 23

REACTIONS (1)
  - Nausea [None]

NARRATIVE: CASE EVENT DATE: 20200318
